FAERS Safety Report 17602047 (Version 1)
Quarter: 2020Q1

REPORT INFORMATION
  Report Type: Spontaneous
  Country: DE (occurrence: DE)
  Receive Date: 20200330
  Receipt Date: 20200330
  Transmission Date: 20200409
  Serious: Yes (Life-Threatening, Other)
  Sender: FDA-Public Use
  Company Number: DE-BAUSCH-BL-2020-008486

PATIENT
  Age: 74 Year
  Sex: Female

DRUGS (10)
  1. LIPOSOMAL DOXORUBICIN [Suspect]
     Active Substance: DOXORUBICIN HYDROCHLORIDE
     Dosage: 6 COURSES IN 4 WEEKLY INTERVALS WITH 50 PERCENT DOSE REDUCTION
     Route: 065
  2. LIPOSOMAL DOXORUBICIN [Suspect]
     Active Substance: DOXORUBICIN HYDROCHLORIDE
     Indication: DIFFUSE LARGE B-CELL LYMPHOMA
     Dosage: 1 SINGLE COURSE OF R-CHOP
     Route: 065
  3. VINCRISTINE [Suspect]
     Active Substance: VINCRISTINE
     Dosage: 6 COURSES IN 4 WEEKLY INTERVALS WITH 50 PERCENT DOSE REDUCTION
     Route: 065
  4. PREDNISOLONE. [Suspect]
     Active Substance: PREDNISOLONE
     Dosage: 6 COURSES IN 4 WEEKLY INTERVALS WITH 50 PERCENT DOSE REDUCTION
     Route: 065
  5. RITUXIMAB. [Suspect]
     Active Substance: RITUXIMAB
     Dosage: 6 COURSES IN 4 WEEKLY INTERVALS WITH 50 PERCENT DOSE REDUCTION
     Route: 065
  6. VINCRISTINE [Suspect]
     Active Substance: VINCRISTINE
     Indication: DIFFUSE LARGE B-CELL LYMPHOMA
     Dosage: 1 SINGLE COURSE OF R-CHOP
     Route: 065
  7. PREDNISOLONE. [Suspect]
     Active Substance: PREDNISOLONE
     Indication: DIFFUSE LARGE B-CELL LYMPHOMA
     Dosage: 1 SINGLE COURSE OF R-CHOP
     Route: 065
  8. RITUXIMAB. [Suspect]
     Active Substance: RITUXIMAB
     Indication: DIFFUSE LARGE B-CELL LYMPHOMA
     Dosage: 1 SINGLE COURSE OF R-CHOP
     Route: 065
  9. CYCLOPHOSPHAMIDE. [Suspect]
     Active Substance: CYCLOPHOSPHAMIDE
     Dosage: 6 COURSES IN 4 WEEKLY INTERVALS WITH 50 PERCENT  DOSE REDUCTION
     Route: 065
  10. CYCLOPHOSPHAMIDE. [Suspect]
     Active Substance: CYCLOPHOSPHAMIDE
     Indication: DIFFUSE LARGE B-CELL LYMPHOMA
     Dosage: 1 SINGLE COURSE OF R-CHOP
     Route: 065

REACTIONS (11)
  - Infection [Unknown]
  - Blood creatinine increased [Unknown]
  - Leukopenia [Unknown]
  - Agitation [Unknown]
  - Diarrhoea [Unknown]
  - Hyperglycaemia [Unknown]
  - Nausea [Unknown]
  - Pyrexia [Unknown]
  - Cholestasis [Unknown]
  - Thrombosis [Unknown]
  - Anaemia [Unknown]
